FAERS Safety Report 20869127 (Version 1)
Quarter: 2022Q2

REPORT INFORMATION
  Report Type: Spontaneous
  Country: US (occurrence: None)
  Receive Date: 20220520
  Receipt Date: 20220520
  Transmission Date: 20220720
  Serious: Yes (Other)
  Sender: FDA-Public Use
  Company Number: None

PATIENT
  Age: 61 Year
  Sex: Female
  Weight: 65.77 kg

DRUGS (2)
  1. VIMPAT [Suspect]
     Active Substance: LACOSAMIDE
     Indication: Seizure
     Dosage: FREQUENCY : TWICE A DAY;?
     Route: 048
     Dates: start: 20220225
  2. VIMPAT [Concomitant]
     Active Substance: LACOSAMIDE
     Dates: start: 20220225

REACTIONS (4)
  - Hallucination, visual [None]
  - Hallucination, auditory [None]
  - Balance disorder [None]
  - Confusional state [None]

NARRATIVE: CASE EVENT DATE: 20220407
